FAERS Safety Report 22540277 (Version 2)
Quarter: 2023Q2

REPORT INFORMATION
  Report Type: Report from Study
  Country: US (occurrence: US)
  Receive Date: 20230609
  Receipt Date: 20230615
  Transmission Date: 20230722
  Serious: No
  Sender: FDA-Public Use
  Company Number: US-SA-SAC20230608000301

PATIENT
  Age: 7 Year
  Sex: Male

DRUGS (5)
  1. DUPILUMAB [Suspect]
     Active Substance: DUPILUMAB
     Indication: Eosinophilic oesophagitis
     Dosage: 300 MG, QOW
     Route: 058
  2. DUPILUMAB [Suspect]
     Active Substance: DUPILUMAB
     Indication: Heart transplant
  3. DUPILUMAB [Suspect]
     Active Substance: DUPILUMAB
     Indication: Heart disease congenital
  4. DUPILUMAB [Suspect]
     Active Substance: DUPILUMAB
     Indication: Poor feeding infant
  5. DUPILUMAB [Suspect]
     Active Substance: DUPILUMAB
     Indication: Eosinophilic gastritis

REACTIONS (3)
  - Product use in unapproved indication [Unknown]
  - Product administered to patient of inappropriate age [Unknown]
  - Off label use [Unknown]
